FAERS Safety Report 12425852 (Version 1)
Quarter: 2016Q2

REPORT INFORMATION
  Report Type: Spontaneous
  Country: US (occurrence: US)
  Receive Date: 20160601
  Receipt Date: 20160601
  Transmission Date: 20160815
  Serious: No
  Sender: FDA-Public Use
  Company Number: US-PROMETHEUS LABORATORIES-2016PL000009

PATIENT
  Sex: Female

DRUGS (1)
  1. PROLEUKIN [Suspect]
     Active Substance: ALDESLEUKIN
     Indication: MALIGNANT MELANOMA
     Dosage: UNK UNKNOWN, UNK
     Dates: start: 2008, end: 2009

REACTIONS (1)
  - Iritis [Unknown]
